FAERS Safety Report 6334418-7 (Version None)
Quarter: 2009Q3

REPORT INFORMATION
  Report Type: 
  Country: None (occurrence: None)
  Receive Date: 20090827
  Receipt Date: 20090824
  Transmission Date: 20100115
  Serious: Yes (Other)
  Sender: FDA-Public Use
  Company Number: 1000008427

PATIENT
  Age: 19 Year
  Sex: Female

DRUGS (4)
  1. LEXAPRO [Suspect]
     Indication: DEPRESSION
     Dosage: 10 MG (10 MG, 1 IN 1 D), ORAL
     Route: 048
     Dates: start: 20090624
  2. SINGULAIR [Concomitant]
  3. FLONASE [Concomitant]
  4. SYNTHROID [Concomitant]

REACTIONS (1)
  - CATARACT [None]
